FAERS Safety Report 7924735-9 (Version None)
Quarter: 2011Q4

REPORT INFORMATION
  Report Type: 
  Country: None (occurrence: None)
  Receive Date: 20111118
  Receipt Date: 20110328
  Transmission Date: 20120403
  Serious: No
  Sender: FDA-Public Use
  Company Number: US-AMGEN-USASP2011016470

PATIENT
  Sex: Female

DRUGS (2)
  1. ENBREL [Suspect]
     Indication: PSORIASIS
     Dosage: UNK
     Dates: start: 20101001, end: 20110201
  2. TREXALL [Concomitant]
     Dosage: UNK

REACTIONS (3)
  - PYREXIA [None]
  - PAIN [None]
  - NAUSEA [None]
